FAERS Safety Report 10415763 (Version 1)
Quarter: 2014Q3

REPORT INFORMATION
  Report Type: Spontaneous
  Country: US (occurrence: None)
  Receive Date: 20140827
  Receipt Date: 20140827
  Transmission Date: 20150326
  Serious: Yes (Life-Threatening, Hospitalization)
  Sender: FDA-Public Use
  Company Number: None

PATIENT
  Age: 67 Year
  Sex: Male
  Weight: 90 kg

DRUGS (8)
  1. LEVOTHYROXINE [Concomitant]
     Active Substance: LEVOTHYROXINE
  2. AMOXICILLIN/CLAVULANATE [Suspect]
     Active Substance: AMOXICILLIN\CLAVULANATE POTASSIUM
     Indication: PNEUMONIA
     Route: 048
     Dates: start: 20140814, end: 20140818
  3. RANITIDINE [Concomitant]
     Active Substance: RANITIDINE\RANITIDINE HYDROCHLORIDE
  4. YUCCA SCHIDIGERA. [Concomitant]
     Active Substance: YUCCA SCHIDIGERA
  5. ALBUTEROL INHALER [Concomitant]
     Active Substance: ALBUTEROL
  6. ASPIRIN. [Concomitant]
     Active Substance: ASPIRIN
  7. SAW PALMETTO [Concomitant]
     Active Substance: SAW PALMETTO
  8. GINSENG [Concomitant]

REACTIONS (2)
  - Hepatitis acute [None]
  - Acute hepatic failure [None]

NARRATIVE: CASE EVENT DATE: 20140818
